FAERS Safety Report 10182515 (Version 1)
Quarter: 2014Q2

REPORT INFORMATION
  Report Type: Spontaneous
  Country: US (occurrence: None)
  Receive Date: 20140519
  Receipt Date: 20140519
  Transmission Date: 20141212
  Serious: No
  Sender: FDA-Public Use
  Company Number: None

PATIENT
  Age: 57 Year
  Sex: Male
  Weight: 102.06 kg

DRUGS (1)
  1. ATIVAN [Suspect]
     Dosage: 0.5 MG (1 TAB), Q6H X 1 DAY, ORAL
     Route: 048
     Dates: start: 20140505, end: 20140505

REACTIONS (1)
  - Hallucination [None]
